FAERS Safety Report 24021585 (Version 3)
Quarter: 2024Q3

REPORT INFORMATION
  Report Type: Spontaneous
  Country: IN (occurrence: IN)
  Receive Date: 20240627
  Receipt Date: 20240710
  Transmission Date: 20241016
  Serious: No
  Sender: ROCHE
  Company Number: IN-ROCHE-3503653

PATIENT
  Age: 61 Year
  Sex: Male

DRUGS (2)
  1. VABYSMO [Suspect]
     Active Substance: FARICIMAB\FARICIMAB-SVOA
     Indication: Retinal haemorrhage
     Dosage: SECOND INFUSION START DATE: 29/FEB/2024
     Route: 050
     Dates: start: 20240130
  2. NEVANAC [Concomitant]
     Active Substance: NEPAFENAC
     Dosage: 3 TIMES A DAY TO CONTINUE, DAYS
     Route: 047
     Dates: start: 20240130

REACTIONS (2)
  - Off label use [Unknown]
  - No adverse event [Unknown]

NARRATIVE: CASE EVENT DATE: 20240130
